FAERS Safety Report 16592178 (Version 1)
Quarter: 2019Q3

REPORT INFORMATION
  Report Type: Spontaneous
  Country: CN (occurrence: CN)
  Receive Date: 20190718
  Receipt Date: 20190718
  Transmission Date: 20191004
  Serious: Yes (Hospitalization)
  Sender: FDA-Public Use
  Company Number: CN-PFIZER INC-2019303492

PATIENT
  Age: 75 Year
  Sex: Male
  Weight: 53 kg

DRUGS (1)
  1. TAZOCIN [Suspect]
     Active Substance: PIPERACILLIN SODIUM\TAZOBACTAM SODIUM
     Indication: THERAPEUTIC PROCEDURE
     Dosage: 4.5 G, 3X/DAY
     Route: 041
     Dates: start: 20190618, end: 20190702

REACTIONS (5)
  - Chest discomfort [Unknown]
  - Oxygen saturation decreased [Unknown]
  - Asthma [Unknown]
  - Eosinophilia [Unknown]
  - Cough [Unknown]

NARRATIVE: CASE EVENT DATE: 20190620
